FAERS Safety Report 22623284 (Version 1)
Quarter: 2023Q2

REPORT INFORMATION
  Report Type: Spontaneous
  Country: PL (occurrence: None)
  Receive Date: 20230621
  Receipt Date: 20230621
  Transmission Date: 20230722
  Serious: Yes (Other)
  Sender: FDA-Public Use
  Company Number: PL-ROCHE-3370184

PATIENT
  Age: 64 Year
  Sex: Male

DRUGS (2)
  1. TECENTRIQ [Suspect]
     Active Substance: ATEZOLIZUMAB
     Indication: Hepatocellular carcinoma
     Route: 065
     Dates: start: 20220728
  2. BEVACIZUMAB [Suspect]
     Active Substance: BEVACIZUMAB
     Indication: Hepatocellular carcinoma
     Route: 065
     Dates: start: 20220728

REACTIONS (10)
  - Spinal osteoarthritis [Unknown]
  - Hypothyroidism [Unknown]
  - Abdominal pain upper [Unknown]
  - Bone pain [Unknown]
  - Arthralgia [Unknown]
  - Administration site haemorrhage [Unknown]
  - Administration site bruise [Unknown]
  - Spinal pain [Unknown]
  - Scrotal erythema [Unknown]
  - Skin exfoliation [Unknown]

NARRATIVE: CASE EVENT DATE: 20221001
